FAERS Safety Report 7784326-X (Version None)
Quarter: 2011Q3

REPORT INFORMATION
  Report Type: 
  Country: None (occurrence: None)
  Receive Date: 20110928
  Receipt Date: 20110919
  Transmission Date: 20111222
  Serious: Yes (Other)
  Sender: FDA-Public Use
  Company Number: PHHY2011US52115

PATIENT
  Sex: Male
  Weight: 63.946 kg

DRUGS (1)
  1. EXJADE [Suspect]
     Indication: HAEMOCHROMATOSIS
     Dosage: 1000 MG, QD
     Route: 048
     Dates: start: 20110606

REACTIONS (3)
  - DIARRHOEA [None]
  - THROMBOSIS [None]
  - OCULAR DISCOMFORT [None]
